FAERS Safety Report 6821299-8 (Version None)
Quarter: 2010Q3

REPORT INFORMATION
  Report Type: 
  Country: None (occurrence: None)
  Receive Date: 20100707
  Receipt Date: 20080509
  Transmission Date: 20110219
  Serious: No
  Sender: FDA-Public Use
  Company Number: US-PFIZER INC-2008040213

PATIENT

DRUGS (1)
  1. ZOLOFT [Suspect]

REACTIONS (5)
  - DEPRESSED MOOD [None]
  - DIARRHOEA [None]
  - EMOTIONAL DISORDER [None]
  - NAUSEA [None]
  - NERVOUSNESS [None]
